FAERS Safety Report 9924485 (Version 2)
Quarter: 2014Q2

REPORT INFORMATION
  Report Type: Report from Study
  Country: PL (occurrence: PL)
  Receive Date: 20140226
  Receipt Date: 20140408
  Transmission Date: 20141212
  Serious: Yes (Hospitalization)
  Sender: FDA-Public Use
  Company Number: PL-ASTELLAS-2014US001884

PATIENT
  Age: 11 Year
  Sex: Female

DRUGS (2)
  1. TACROLIMUS OINTMENT [Suspect]
     Indication: DERMATITIS ATOPIC
     Dosage: 0.03 %, ONCE A DAY, TWICE WEEKLY
     Route: 061
     Dates: start: 2009
  2. TACROLIMUS OINTMENT [Suspect]
     Dosage: 0.03 %, UID/QD
     Route: 061
     Dates: start: 2009

REACTIONS (1)
  - Skin papilloma [Recovered/Resolved]
